FAERS Safety Report 9619362 (Version 1)
Quarter: 2013Q4

REPORT INFORMATION
  Report Type: Spontaneous
  Country: US (occurrence: US)
  Receive Date: 20131014
  Receipt Date: 20131014
  Transmission Date: 20140711
  Serious: No
  Sender: FDA-Public Use
  Company Number: US-009507513-1309USA012706

PATIENT
  Sex: Female
  Weight: 154.65 kg

DRUGS (1)
  1. NEXPLANON [Suspect]
     Indication: CONTRACEPTION
     Dosage: 1 ROD
     Route: 059
     Dates: start: 20130416, end: 20130925

REACTIONS (3)
  - Pain [Unknown]
  - Device breakage [Recovered/Resolved]
  - Product quality issue [Unknown]
